FAERS Safety Report 23804009 (Version 1)
Quarter: 2024Q2

REPORT INFORMATION
  Report Type: Spontaneous
  Country: US (occurrence: US)
  Receive Date: 20240501
  Receipt Date: 20240501
  Transmission Date: 20240716
  Serious: No
  Sender: FDA-Public Use
  Company Number: US-MYLANLABS-2024M1036762

PATIENT
  Sex: Female

DRUGS (1)
  1. TYRVAYA [Suspect]
     Active Substance: VARENICLINE TARTRATE
     Indication: Dry eye
     Dosage: UNK, BID (TWICE A DAY, MORNING AND EVENING)
     Route: 065
     Dates: start: 20240410

REACTIONS (3)
  - Sneezing [Unknown]
  - Throat irritation [Unknown]
  - Instillation site irritation [Unknown]
